FAERS Safety Report 6774013-9 (Version None)
Quarter: 2010Q2

REPORT INFORMATION
  Report Type: 
  Country: None (occurrence: None)
  Receive Date: 20100617
  Receipt Date: 20100604
  Transmission Date: 20101027
  Serious: Yes (Hospitalization)
  Sender: FDA-Public Use
  Company Number: US-ELI_LILLY_AND_COMPANY-US201006003169

PATIENT
  Sex: Female

DRUGS (12)
  1. FORTEO [Suspect]
     Indication: OSTEOPOROSIS
     Dosage: 20 UG, DAILY (1/D)
     Dates: start: 20090101, end: 20100501
  2. PLAQUENIL /00072601/ [Concomitant]
  3. METHOTREXATE [Concomitant]
  4. METHYLPREDNISOLONE [Concomitant]
  5. FOLIC ACID [Concomitant]
  6. FUROSEMIDE [Concomitant]
  7. LISINOPRIL [Concomitant]
  8. CALCIUM CARBONATE [Concomitant]
     Dosage: UNK, 2/D
  9. ADVAIR DISKUS 100/50 [Concomitant]
  10. TYLENOL (CAPLET) [Concomitant]
     Dosage: UNK, AS NEEDED
  11. VITAMIN TAB [Concomitant]
     Dosage: UNK, DAILY (1/D)
  12. VENTOLIN [Concomitant]

REACTIONS (2)
  - CLOSTRIDIAL INFECTION [None]
  - IMMUNE SYSTEM DISORDER [None]
